FAERS Safety Report 10081092 (Version 2)
Quarter: 2014Q3

REPORT INFORMATION
  Report Type: Spontaneous
  Country: FR (occurrence: None)
  Receive Date: 20140414
  Receipt Date: 20140908
  Transmission Date: 20150326
  Serious: Yes (Other)
  Sender: FDA-Public Use
  Company Number: 7280499

PATIENT
  Age: 79 Year
  Sex: Female

DRUGS (7)
  1. ZOCOR [Suspect]
     Active Substance: SIMVASTATIN
     Indication: DYSLIPIDAEMIA
     Dosage: 0.5 DF (0.5 DF, 1 IN 1 D)
     Route: 048
  2. ZESTORETIC [Suspect]
     Active Substance: HYDROCHLOROTHIAZIDE\LISINOPRIL
     Indication: PRODUCT USED FOR UNKNOWN INDICATION
     Dosage: 1 DF, 1 IN 1 D
     Route: 048
  3. FLODIL (FELODIPINE) [Suspect]
     Active Substance: FELODIPINE
     Indication: HYPERTENSION
     Route: 048
  4. MODAMIDE [Suspect]
     Active Substance: AMILORIDE HYDROCHLORIDE
     Indication: PRODUCT USED FOR UNKNOWN INDICATION
     Dosage: 0.7143 DF (0.7143, 1 IN 1 D)
     Route: 048
  5. LEVOTHYROXINE SODIUM. [Suspect]
     Active Substance: LEVOTHYROXINE SODIUM
     Indication: PRODUCT USED FOR UNKNOWN INDICATION
     Dosage: 1 DF (1 DF, 1 IN 1 D)
     Route: 048
  6. KARDEGIC [Suspect]
     Active Substance: ASPIRIN LYSINE
     Indication: PRODUCT USED FOR UNKNOWN INDICATION
     Route: 048
     Dates: end: 20140301
  7. FLECAINE [Suspect]
     Active Substance: FLECAINIDE
     Indication: ARRHYTHMIA
     Dosage: 1 DF, 1 IN 1 D
     Route: 048

REACTIONS (4)
  - Polyneuropathy [None]
  - Autonomic neuropathy [None]
  - Peripheral sensory neuropathy [None]
  - Underdose [None]

NARRATIVE: CASE EVENT DATE: 2013
